FAERS Safety Report 9440326 (Version 2)
Quarter: 2013Q3

REPORT INFORMATION
  Report Type: Spontaneous
  Country: US (occurrence: US)
  Receive Date: 20130805
  Receipt Date: 20130827
  Transmission Date: 20140515
  Serious: Yes (Hospitalization, Other)
  Sender: FDA-Public Use
  Company Number: US-PFIZER INC-2013223605

PATIENT
  Age: 57 Year
  Sex: Female
  Weight: 55.78 kg

DRUGS (3)
  1. REVATIO [Suspect]
     Indication: PULMONARY HYPERTENSION
     Dosage: UNK, 3X/DAY
     Dates: start: 2007
  2. TIZANIDINE [Concomitant]
     Indication: SPINAL CORD INJURY
     Dosage: UNK
  3. GABAPENTIN [Concomitant]
     Indication: SPINAL CORD INJURY
     Dosage: 600 MG, 4X/DAY

REACTIONS (3)
  - Sepsis [Recovered/Resolved]
  - Arthropathy [Unknown]
  - Cellulitis [Unknown]
